FAERS Safety Report 23107492 (Version 2)
Quarter: 2024Q2

REPORT INFORMATION
  Report Type: Other
  Country: SK (occurrence: SK)
  Receive Date: 20231026
  Receipt Date: 20240608
  Transmission Date: 20240716
  Serious: Yes (Hospitalization, Other)
  Sender: FDA-Public Use
  Company Number: SK-PFIZER INC-PV202300168930

PATIENT
  Age: 3 Year
  Sex: Female

DRUGS (3)
  1. RITUXIMAB [Suspect]
     Active Substance: RITUXIMAB
     Indication: Cytopenia
     Dosage: 375 MG/M2
     Route: 042
  2. SOLU-MEDROL [Suspect]
     Active Substance: METHYLPREDNISOLONE SODIUM SUCCINATE
     Indication: Cytopenia
     Dosage: 5-10 MG/KG
     Route: 065
  3. RITUXIMAB [Concomitant]
     Active Substance: RITUXIMAB
     Indication: Cytopenia
     Dosage: 375 MG/M2, 1/WEEK, AT A SURFACE OF 0.79 M2 = 1 X 300 MG I.V. (A TOTAL OF 4 DOSES EVERY 1 WEEK)
     Route: 065

REACTIONS (5)
  - Respiratory tract infection [Unknown]
  - Ear infection [Unknown]
  - Hypertension [Unknown]
  - Cushingoid [Unknown]
  - Therapeutic product effect incomplete [Unknown]
